FAERS Safety Report 6012205-7 (Version None)
Quarter: 2008Q4

REPORT INFORMATION
  Report Type: 
  Country: None (occurrence: None)
  Receive Date: 20081218
  Receipt Date: 20081210
  Transmission Date: 20090506
  Serious: Yes (Death, Hospitalization)
  Sender: FDA-Public Use
  Company Number: GB-ROCHE-591213

PATIENT
  Sex: Female

DRUGS (2)
  1. CAPECITABINE [Suspect]
     Indication: COLON CANCER
     Dosage: DOSE: 56000 MG PER CYCLE. CURRENT CYCLE NUMBER: 4
     Route: 048
     Dates: start: 20080710, end: 20081002
  2. BEVACIZUMAB [Suspect]
     Indication: COLON CANCER
     Dosage: FREQUENCY: INFUSION ONCE EVERY 3 WEEK. CURRENT CYCLE NUMBER: 4
     Route: 042
     Dates: start: 20080710, end: 20080918

REACTIONS (1)
  - CEREBROVASCULAR ACCIDENT [None]
